FAERS Safety Report 6036133-6 (Version None)
Quarter: 2009Q1

REPORT INFORMATION
  Report Type: 
  Country: None (occurrence: None)
  Receive Date: 20090113
  Receipt Date: 20090106
  Transmission Date: 20090719
  Serious: Yes (Hospitalization, Other)
  Sender: FDA-Public Use
  Company Number: JP-PFIZER INC-2008097079

PATIENT
  Age: 70 Year
  Sex: Female

DRUGS (4)
  1. CELECOX [Suspect]
     Indication: OSTEOARTHRITIS
     Dosage: 200 MG, 1X/DAY
     Route: 048
     Dates: start: 20081103, end: 20081113
  2. VALSARTAN [Concomitant]
     Dosage: 80 MG, 1X/DAY
     Route: 048
  3. INSULIN [Concomitant]
     Dosage: UNK
  4. ITOROL [Concomitant]
     Dosage: 20 MG, 1X/DAY
     Route: 048

REACTIONS (1)
  - ANGINA PECTORIS [None]
